FAERS Safety Report 6655448-1 (Version None)
Quarter: 2010Q1

REPORT INFORMATION
  Report Type: 
  Country: None (occurrence: None)
  Receive Date: 20100329
  Receipt Date: 20100318
  Transmission Date: 20100710
  Serious: Yes (Hospitalization)
  Sender: FDA-Public Use
  Company Number: US-ELI_LILLY_AND_COMPANY-US201003005221

PATIENT
  Sex: Female
  Weight: 56.2 kg

DRUGS (10)
  1. PEMETREXED [Suspect]
     Indication: NON-SMALL CELL LUNG CANCER
     Dosage: 500 MG/M2, OTHER
     Route: 042
     Dates: start: 20100128, end: 20100218
  2. CARBOPLATIN [Suspect]
     Indication: NON-SMALL CELL LUNG CANCER
     Dosage: 6 D/F, OTHER
     Route: 042
     Dates: start: 20100128, end: 20100218
  3. BEVACIZUMAB [Suspect]
     Indication: NON-SMALL CELL LUNG CANCER
     Dosage: 15 MG/KG, OTHER
     Route: 042
     Dates: start: 20100128, end: 20100218
  4. ALUMINIUM HYDROXIDE W/ MAGNESIUM HYDROXIDE [Concomitant]
     Dates: start: 20100202
  5. DEXAMETHASONE [Concomitant]
     Indication: ANTIEMETIC SUPPORTIVE CARE
     Dates: start: 20100128
  6. LACTULOSE [Concomitant]
     Dates: start: 20100225
  7. METOPROLOL [Concomitant]
     Indication: HYPERTENSION
     Dates: start: 20091231
  8. MORPHINE SULFATE [Concomitant]
     Indication: PAIN
     Dates: start: 20100225
  9. PANTOPRAZOLE [Concomitant]
     Dates: start: 20100225
  10. SENNA-S /01035001/ [Concomitant]
     Indication: CONSTIPATION
     Dates: start: 20100202

REACTIONS (2)
  - NON-CARDIAC CHEST PAIN [None]
  - VOMITING [None]
